FAERS Safety Report 22164786 (Version 1)
Quarter: 2023Q2

REPORT INFORMATION
  Report Type: Spontaneous
  Country: IT (occurrence: IT)
  Receive Date: 20230403
  Receipt Date: 20230403
  Transmission Date: 20230721
  Serious: Yes (Other)
  Sender: FDA-Public Use
  Company Number: IT-Hikma Pharmaceuticals-IT-H14001-23-00912

PATIENT
  Age: 59 Year
  Sex: Female

DRUGS (2)
  1. CARBOPLATIN [Suspect]
     Active Substance: CARBOPLATIN
     Indication: Triple negative breast cancer
     Dosage: UNKNOWN (AUC 2)
     Route: 065
     Dates: start: 202108
  2. PACLITAXEL [Suspect]
     Active Substance: PACLITAXEL
     Indication: Triple negative breast cancer
     Route: 065
     Dates: start: 202108

REACTIONS (3)
  - Metastases to central nervous system [Unknown]
  - Central nervous system lesion [Unknown]
  - Disease progression [Unknown]
